FAERS Safety Report 16534668 (Version 2)
Quarter: 2019Q3

REPORT INFORMATION
  Report Type: Report from Study
  Country: CO (occurrence: CO)
  Receive Date: 20190705
  Receipt Date: 20190730
  Transmission Date: 20191004
  Serious: Yes (Other)
  Sender: FDA-Public Use
  Company Number: CO-ALEXION PHARMACEUTICALS INC.-A201910326

PATIENT
  Age: 38 Year
  Sex: Male
  Weight: 68 kg

DRUGS (2)
  1. SOLIRIS [Suspect]
     Active Substance: ECULIZUMAB
     Dosage: 900 MG, Q2W
     Route: 042
     Dates: start: 20150319
  2. SOLIRIS [Suspect]
     Active Substance: ECULIZUMAB
     Indication: PAROXYSMAL NOCTURNAL HAEMOGLOBINURIA
     Dosage: 600 MG, QW
     Route: 042
     Dates: start: 20150220

REACTIONS (11)
  - Fatigue [Recovered/Resolved]
  - Musculoskeletal pain [Recovered/Resolved]
  - Back pain [Recovered/Resolved]
  - Haemoglobin decreased [Recovered/Resolved]
  - Jaundice [Recovered/Resolved]
  - Asthenia [Recovered/Resolved]
  - Headache [Recovered/Resolved]
  - Affective disorder [Recovered/Resolved]
  - Haemolysis [Recovered/Resolved]
  - Haematuria [Recovered/Resolved]
  - Haemoglobinuria [Recovered/Resolved]

NARRATIVE: CASE EVENT DATE: 20190622
